FAERS Safety Report 24732139 (Version 1)
Quarter: 2024Q4

REPORT INFORMATION
  Report Type: Spontaneous
  Country: US (occurrence: US)
  Receive Date: 20241213
  Receipt Date: 20241213
  Transmission Date: 20250115
  Serious: Yes (Other)
  Sender: NOVARTIS
  Company Number: US-002147023-NVSC2024US236957

PATIENT
  Age: 58 Year
  Sex: Female

DRUGS (4)
  1. ZOMETA [Suspect]
     Active Substance: ZOLEDRONIC ACID
     Indication: Product used for unknown indication
     Dosage: UNK
     Route: 065
  2. FOTIVDA [Suspect]
     Active Substance: TIVOZANIB HYDROCHLORIDE
     Indication: Renal cell carcinoma
     Dosage: 1.34 MG, QD (DAILY FOR 21 DAYS WITH 7 DAYS OFF, 28-DAY CYCLE)
     Route: 048
     Dates: start: 20241029, end: 2024
  3. FOTIVDA [Suspect]
     Active Substance: TIVOZANIB HYDROCHLORIDE
     Dosage: 1.34 MG, QD ((DAILY FOR 21 DAYS WITH 7 DAYS OFF)
     Route: 048
     Dates: start: 2024
  4. AUGMENTIN [Concomitant]
     Active Substance: AMOXICILLIN\CLAVULANATE POTASSIUM
     Indication: Product used for unknown indication
     Dosage: UNK
     Route: 065

REACTIONS (4)
  - Osteonecrosis of jaw [Unknown]
  - Weight decreased [Unknown]
  - Impaired healing [Unknown]
  - Infection [Unknown]

NARRATIVE: CASE EVENT DATE: 20241101
